FAERS Safety Report 25795429 (Version 1)
Quarter: 2025Q3

REPORT INFORMATION
  Report Type: Spontaneous
  Country: US (occurrence: US)
  Receive Date: 20250912
  Receipt Date: 20250912
  Transmission Date: 20251020
  Serious: Yes (Life-Threatening, Hospitalization, Other)
  Sender: RANBAXY
  Company Number: US-SUN PHARMACEUTICAL INDUSTRIES LTD-2025R1-527084

PATIENT
  Age: 50 Year
  Sex: Male

DRUGS (3)
  1. AMIODARONE [Suspect]
     Active Substance: AMIODARONE
     Indication: Acute myocardial infarction
     Route: 065
  2. LIDOCAINE [Suspect]
     Active Substance: LIDOCAINE
     Indication: Acute myocardial infarction
     Route: 065
  3. ALTEPLASE [Suspect]
     Active Substance: ALTEPLASE
     Indication: Acute myocardial infarction
     Route: 065

REACTIONS (1)
  - Disease recurrence [Unknown]
